FAERS Safety Report 14532400 (Version 1)
Quarter: 2018Q1

REPORT INFORMATION
  Report Type: Spontaneous
  Country: GR (occurrence: GR)
  Receive Date: 20180214
  Receipt Date: 20180214
  Transmission Date: 20180509
  Serious: Yes (Other)
  Sender: FDA-Public Use
  Company Number: GR-G+W LABS-GW2018GR000013

PATIENT

DRUGS (1)
  1. ACYCLOVIR. [Suspect]
     Active Substance: ACYCLOVIR
     Indication: HERPES SIMPLEX MENINGOENCEPHALITIS
     Dosage: 30 MG/KG/24HR IN THREE DIVIDED DOSES
     Route: 042

REACTIONS (2)
  - Soft tissue necrosis [Recovered/Resolved]
  - Administration site extravasation [Recovered/Resolved]
